FAERS Safety Report 8543252-9 (Version None)
Quarter: 2012Q3

REPORT INFORMATION
  Report Type: 
  Country: None (occurrence: None)
  Receive Date: 20120719
  Receipt Date: 20120719
  Transmission Date: 20120928
  Serious: Yes (Death)
  Sender: FDA-Public Use
  Company Number: None

PATIENT
  Age: 88 Year
  Sex: Male
  Weight: 73 kg

DRUGS (1)
  1. PROFILNINE SD [Suspect]
     Dosage: 37000 UNITS IV
     Route: 042
     Dates: start: 20120606, end: 20120606

REACTIONS (7)
  - SUBDURAL HAEMATOMA [None]
  - UNRESPONSIVE TO STIMULI [None]
  - PULSE ABSENT [None]
  - CYANOSIS [None]
  - SUBDURAL HYGROMA [None]
  - INTERNATIONAL NORMALISED RATIO INCREASED [None]
  - APNOEIC ATTACK [None]
